FAERS Safety Report 7907658-0 (Version None)
Quarter: 2011Q4

REPORT INFORMATION
  Report Type: 
  Country: None (occurrence: None)
  Receive Date: 20111110
  Receipt Date: 20111103
  Transmission Date: 20120403
  Serious: Yes (Death, Life-Threatening, Hospitalization, Other)
  Sender: FDA-Public Use
  Company Number: NZ-B.I. PHARMACEUTICALS,INC./RIDGEFIELD-2011-AU-00449AU

PATIENT
  Sex: Male

DRUGS (8)
  1. WARFARIN SODIUM [Suspect]
     Indication: CEREBROVASCULAR ACCIDENT PROPHYLAXIS
     Dates: start: 20110601, end: 20110705
  2. DILTIAZEM HCL [Concomitant]
  3. SIMVASTATIN [Concomitant]
  4. ALLOPURINOL [Concomitant]
  5. FUROSEMIDE [Concomitant]
  6. FLUTICASONE PROPIONATE/SALMETEROL [Concomitant]
  7. SPIRIVA [Concomitant]
  8. PRADAXA [Suspect]
     Indication: ATRIAL FIBRILLATION
     Dosage: 300 MG
     Route: 048
     Dates: start: 20110705, end: 20110707

REACTIONS (8)
  - DEATH [None]
  - GASTRIC CANCER [None]
  - GASTRITIS [None]
  - RECTAL HAEMORRHAGE [None]
  - INTERNATIONAL NORMALISED RATIO INCREASED [None]
  - MEDICATION ERROR [None]
  - MELAENA [None]
  - GASTROINTESTINAL HAEMORRHAGE [None]
